FAERS Safety Report 14071249 (Version 2)
Quarter: 2018Q1

REPORT INFORMATION
  Report Type: Spontaneous
  Country: US (occurrence: US)
  Receive Date: 20171010
  Receipt Date: 20180208
  Transmission Date: 20180508
  Serious: No
  Sender: FDA-Public Use
  Company Number: US-JNJFOC-20170806456

PATIENT
  Sex: Male

DRUGS (8)
  1. IMBRUVICA [Suspect]
     Active Substance: IBRUTINIB
     Indication: WALDENSTROM^S MACROGLOBULINAEMIA
     Route: 048
     Dates: start: 20170630
  2. CYANOCOBALAMIN. [Concomitant]
     Active Substance: CYANOCOBALAMIN
  3. IRON [Concomitant]
     Active Substance: IRON
  4. ASPIRIN. [Concomitant]
     Active Substance: ASPIRIN
  5. LEVOTHYROXINE. [Concomitant]
     Active Substance: LEVOTHYROXINE
  6. IMBRUVICA [Suspect]
     Active Substance: IBRUTINIB
     Indication: WALDENSTROM^S MACROGLOBULINAEMIA
     Route: 048
     Dates: start: 2017
  7. SIMVASTATIN. [Concomitant]
     Active Substance: SIMVASTATIN
  8. PRESERVISION AREDS [Concomitant]
     Active Substance: MINERALS\VITAMINS

REACTIONS (4)
  - Asthenia [Unknown]
  - Fatigue [Unknown]
  - Off label use [Unknown]
  - Incorrect dose administered [Unknown]
